FAERS Safety Report 4372301-7 (Version None)
Quarter: 2004Q2

REPORT INFORMATION
  Report Type: 
  Country: None (occurrence: None)
  Receive Date: 20040602
  Receipt Date: 20040517
  Transmission Date: 20050107
  Serious: Yes (Hospitalization)
  Sender: FDA-Public Use
  Company Number: 2004AP02749

PATIENT
  Age: 78 Year
  Sex: Female

DRUGS (9)
  1. OMEPRAZOLE [Suspect]
     Indication: CLOSTRIDIUM COLITIS
     Dosage: 20 MG DAILY PO
     Route: 048
     Dates: start: 20040424, end: 20040430
  2. FRANDOL [Concomitant]
  3. DAIKENTYUTO [Concomitant]
  4. FERROMIA [Concomitant]
  5. HEAVY MAGNESIUM OXIDE [Concomitant]
  6. SODIUM BICARBONATE [Concomitant]
  7. EPADEL [Concomitant]
  8. OPALMON [Concomitant]
  9. ALOSENN [Concomitant]

REACTIONS (2)
  - HYPONATRAEMIA [None]
  - LEUKOPENIA [None]
